FAERS Safety Report 5717143-2 (Version None)
Quarter: 2008Q2

REPORT INFORMATION
  Report Type: 
  Country: None (occurrence: None)
  Receive Date: 20080424
  Receipt Date: 20080414
  Transmission Date: 20081010
  Serious: Yes (Hospitalization)
  Sender: FDA-Public Use
  Company Number: FR-PFIZER INC-2008033235

PATIENT
  Sex: Male

DRUGS (10)
  1. ZOLOFT [Suspect]
     Indication: DEPRESSION
     Dosage: TEXT:1 DF
     Route: 048
  2. ALPRAZOLAM [Suspect]
     Indication: ANXIETY
     Route: 048
  3. OXAZEPAM [Suspect]
     Indication: ANXIETY
     Route: 048
  4. FELODIPINE [Suspect]
     Indication: HYPERTENSION
     Dosage: TEXT:1DF
     Route: 048
  5. DETENSIEL [Suspect]
     Indication: HYPERTENSION
     Dosage: DAILY DOSE:10MG
     Route: 048
  6. IKOREL [Suspect]
     Indication: ANGINA PECTORIS
     Dosage: DAILY DOSE:20MG
     Route: 048
  7. PLAVIX [Concomitant]
     Indication: ARTERIAL THROMBOSIS
     Route: 048
  8. PIASCLEDINE [Concomitant]
     Indication: OSTEOARTHRITIS
     Route: 048
  9. PANTOPRAZOLE SODIUM [Concomitant]
     Indication: GASTROOESOPHAGEAL REFLUX DISEASE
     Route: 048
  10. AERIUS [Concomitant]
     Indication: RHINITIS ALLERGIC
     Route: 048

REACTIONS (2)
  - HYPONATRAEMIA [None]
  - MALAISE [None]
